FAERS Safety Report 14543834 (Version 8)
Quarter: 2019Q4

REPORT INFORMATION
  Report Type: Spontaneous
  Country: US (occurrence: US)
  Receive Date: 20180216
  Receipt Date: 20191126
  Transmission Date: 20200122
  Serious: Yes (Hospitalization)
  Sender: FDA-Public Use
  Company Number: US-ACTELION-A-NJ2018-167927

PATIENT
  Sex: Female
  Weight: 72.56 kg

DRUGS (6)
  1. VELETRI [Suspect]
     Active Substance: EPOPROSTENOL
     Indication: PULMONARY ARTERIAL HYPERTENSION
     Dosage: 9 NG/KG, PER MIN
     Route: 042
  2. OPSUMIT [Concomitant]
     Active Substance: MACITENTAN
  3. ADCIRCA [Concomitant]
     Active Substance: TADALAFIL
  4. VELETRI [Suspect]
     Active Substance: EPOPROSTENOL
     Dosage: 12 NG/KG, PER MIN
     Route: 042
  5. VELETRI [Suspect]
     Active Substance: EPOPROSTENOL
     Dosage: 10 NG/KG, PER MIN
     Route: 042
  6. VELETRI [Suspect]
     Active Substance: EPOPROSTENOL
     Dosage: 11 NG/KG, PER MIN
     Route: 042

REACTIONS (13)
  - Flushing [Unknown]
  - Catheter site infection [Recovered/Resolved]
  - Dyspnoea exertional [Unknown]
  - Pain in extremity [Unknown]
  - Palpitations [Unknown]
  - Hospitalisation [Unknown]
  - Acute kidney injury [Unknown]
  - Myalgia [Unknown]
  - Pain in jaw [Unknown]
  - Pain [Unknown]
  - Product administration error [Recovered/Resolved]
  - Headache [Unknown]
  - Emergency care [Unknown]
